FAERS Safety Report 7048865-1 (Version None)
Quarter: 2010Q4

REPORT INFORMATION
  Report Type: 
  Country: None (occurrence: None)
  Receive Date: 20101018
  Receipt Date: 20101006
  Transmission Date: 20110411
  Serious: Yes (Hospitalization)
  Sender: FDA-Public Use
  Company Number: US-CELGENEUS-163-21880-10071082

PATIENT
  Sex: Male

DRUGS (5)
  1. REVLIMID [Suspect]
     Indication: MULTIPLE MYELOMA
     Route: 048
     Dates: start: 20080801, end: 20090101
  2. REVLIMID [Suspect]
     Route: 048
     Dates: start: 20090201, end: 20090101
  3. REVLIMID [Suspect]
     Route: 048
     Dates: start: 20091101, end: 20100801
  4. REVLIMID [Suspect]
     Route: 048
     Dates: start: 20101007
  5. BLOOD TRANSFUSION [Concomitant]
     Indication: PRODUCT USED FOR UNKNOWN INDICATION
     Route: 051
     Dates: start: 20100601, end: 20100601

REACTIONS (2)
  - CHOLELITHIASIS [None]
  - PANCREATITIS [None]
